FAERS Safety Report 14176219 (Version 1)
Quarter: 2017Q4

REPORT INFORMATION
  Report Type: Spontaneous
  Country: US (occurrence: US)
  Receive Date: 20171109
  Receipt Date: 20171109
  Transmission Date: 20180321
  Serious: No
  Sender: FDA-Public Use
  Company Number: US-BAYER-2017-213711

PATIENT
  Age: 37 Year
  Sex: Female

DRUGS (1)
  1. MIRENA [Suspect]
     Active Substance: LEVONORGESTREL
     Dosage: 20 MG/24HR, CONT
     Route: 015
     Dates: start: 20171103, end: 20171103

REACTIONS (2)
  - Complication of device insertion [None]
  - Uterine leiomyoma [None]

NARRATIVE: CASE EVENT DATE: 20171103
